FAERS Safety Report 7807126-0 (Version None)
Quarter: 2011Q4

REPORT INFORMATION
  Report Type: 
  Country: None (occurrence: None)
  Receive Date: 20111011
  Receipt Date: 20110928
  Transmission Date: 20120403
  Serious: Yes (Other)
  Sender: FDA-Public Use
  Company Number: US-ELI_LILLY_AND_COMPANY-US201109008092

PATIENT
  Sex: Male

DRUGS (3)
  1. FORTEO [Suspect]
     Indication: OSTEOPOROSIS
     Dosage: 20 UG, QD
     Dates: start: 20100101
  2. ANTIHYPERTENSIVES [Concomitant]
  3. HUMATROPE [Suspect]

REACTIONS (5)
  - BLOOD GROWTH HORMONE DECREASED [None]
  - BONE DENSITY DECREASED [None]
  - HIP FRACTURE [None]
  - UPPER LIMB FRACTURE [None]
  - MEDICATION ERROR [None]
